FAERS Safety Report 25914596 (Version 1)
Quarter: 2025Q4

REPORT INFORMATION
  Report Type: Spontaneous
  Country: CA (occurrence: CA)
  Receive Date: 20251013
  Receipt Date: 20251013
  Transmission Date: 20260118
  Serious: Yes (Other)
  Sender: FRESENIUS KABI
  Company Number: CA-FreseniusKabi-FK202513846

PATIENT
  Age: 80 Year
  Sex: Female

DRUGS (2)
  1. BLEOMYCIN [Suspect]
     Active Substance: BLEOMYCIN SULFATE
     Indication: Transcatheter arterial chemoembolisation
     Dosage: 12 UNITS TOTAL?DELIVERED TO THE RIGHT MIDPROXIMAL HEPATIC ARTERY
  2. LIPIODOL [Concomitant]
     Active Substance: ETHIODIZED OIL
     Indication: Transcatheter arterial chemoembolisation
     Dosage: DELIVERED TO THE RIGHT MIDPROXIMAL HEPATIC ARTERY

REACTIONS (2)
  - Bile duct stenosis [Recovered/Resolved]
  - Cholangitis [Recovered/Resolved]
